FAERS Safety Report 6608603-0 (Version None)
Quarter: 2010Q1

REPORT INFORMATION
  Report Type: 
  Country: None (occurrence: None)
  Receive Date: 20100223
  Receipt Date: 20100212
  Transmission Date: 20100710
  Serious: Yes (Hospitalization)
  Sender: FDA-Public Use
  Company Number: 234053K09USA

PATIENT
  Age: 50 Year
  Sex: Female

DRUGS (6)
  1. REBIF [Suspect]
     Indication: OFF LABEL USE
     Dates: start: 20090216, end: 20090316
  2. PLAVIX [Suspect]
     Indication: ANEURYSM
  3. ASPIRIN [Suspect]
     Indication: ANEURYSM
     Dates: end: 20090401
  4. UNSPECIFIED STEROIDS (CORTICOSTEROIDS) [Concomitant]
  5. MULTI-VITAMINS [Concomitant]
  6. MECLIZINE [Concomitant]

REACTIONS (7)
  - DIZZINESS [None]
  - GASTROINTESTINAL HAEMORRHAGE [None]
  - HAEMORRHOIDS [None]
  - INTRACRANIAL PRESSURE INCREASED [None]
  - OFF LABEL USE [None]
  - PLASMA VISCOSITY DECREASED [None]
  - URINARY TRACT INFECTION [None]
